FAERS Safety Report 9782592 (Version 1)
Quarter: 2013Q4

REPORT INFORMATION
  Report Type: Spontaneous
  Country: US (occurrence: US)
  Receive Date: 20131226
  Receipt Date: 20131226
  Transmission Date: 20140711
  Serious: Yes (Hospitalization)
  Sender: FDA-Public Use
  Company Number: PHEH2013US026261

PATIENT
  Age: 70 Year
  Sex: Male

DRUGS (2)
  1. EXELON PATCH [Suspect]
     Indication: DEMENTIA ALZHEIMER^S TYPE
     Dosage: 4.6 MG, QD
     Route: 062
  2. EXELON PATCH [Suspect]
     Dosage: 18 PATCHES
     Route: 062

REACTIONS (2)
  - Confusional state [Recovered/Resolved]
  - Drug administration error [Recovered/Resolved]
